FAERS Safety Report 5371740-5 (Version None)
Quarter: 2007Q2

REPORT INFORMATION
  Report Type: 
  Country: None (occurrence: None)
  Receive Date: 20070627
  Receipt Date: 20070614
  Transmission Date: 20071010
  Serious: Yes (Death, Other)
  Sender: FDA-Public Use
  Company Number: ZA-ELI_LILLY_AND_COMPANY-ZA200705004666

PATIENT
  Age: 74 Year
  Sex: Male
  Weight: 65 kg

DRUGS (2)
  1. GEMZAR [Suspect]
     Indication: BLADDER CANCER
     Dosage: 500 MG, WEEKLY (1/W)
     Route: 042
     Dates: start: 20070329, end: 20070502
  2. THERAPEUTIC RADIOPHARMACEUTICALS [Concomitant]
     Indication: BLADDER CANCER
     Dosage: 1.8 TO 66 GREY
     Dates: start: 20070326, end: 20070523

REACTIONS (2)
  - CEREBROVASCULAR ACCIDENT [None]
  - PLATELET COUNT INCREASED [None]
